FAERS Safety Report 16008448 (Version 1)
Quarter: 2019Q1

REPORT INFORMATION
  Report Type: Spontaneous
  Country: ES (occurrence: ES)
  Receive Date: 20190226
  Receipt Date: 20190226
  Transmission Date: 20190418
  Serious: Yes (Other)
  Sender: FDA-Public Use
  Company Number: PHHY2019ES042199

PATIENT
  Age: 81 Year
  Sex: Female

DRUGS (2)
  1. COLIRCUSI FENILEFRINA [Suspect]
     Active Substance: PHENYLEPHRINE HYDROCHLORIDE
     Indication: CATARACT OPERATION
     Dosage: 4 GTT, QD
     Route: 047
     Dates: start: 20190206, end: 20190206
  2. CYCLOPENTOLATE HCL [Suspect]
     Active Substance: CYCLOPENTOLATE HYDROCHLORIDE
     Indication: CATARACT OPERATION
     Dosage: 8 GTT, QD
     Route: 047
     Dates: start: 20190206, end: 20190206

REACTIONS (2)
  - Conjunctivitis [Recovering/Resolving]
  - Blepharitis [Recovering/Resolving]

NARRATIVE: CASE EVENT DATE: 20190206
